FAERS Safety Report 18241252 (Version 1)
Quarter: 2020Q3

REPORT INFORMATION
  Report Type: Spontaneous
  Country: US (occurrence: US)
  Receive Date: 20200904
  Receipt Date: 20200904
  Transmission Date: 20201103
  Serious: No
  Sender: FDA-Public Use
  Company Number: None

PATIENT
  Age: 24 Year
  Sex: Male

DRUGS (1)
  1. AMBRISENTAN 10MG TABLETS 30/BO: 10MG [Suspect]
     Active Substance: AMBRISENTAN
     Indication: CARDIAC SEPTAL DEFECT
     Route: 048
     Dates: start: 20120821

REACTIONS (4)
  - Aspiration [None]
  - Dyspnoea [None]
  - Oxygen saturation decreased [None]
  - Cough [None]

NARRATIVE: CASE EVENT DATE: 20200811
